FAERS Safety Report 24156684 (Version 1)
Quarter: 2024Q3

REPORT INFORMATION
  Report Type: Spontaneous
  Country: US (occurrence: US)
  Receive Date: 20240731
  Receipt Date: 20240731
  Transmission Date: 20241016
  Serious: No
  Sender: JOHNSON AND JOHNSON
  Company Number: US-JNJFOC-20240763908

PATIENT
  Age: 59 Year
  Sex: Female

DRUGS (1)
  1. WOMENS ROGAINE UNSCENTED [Suspect]
     Active Substance: MINOXIDIL
     Indication: Alopecia
     Dosage: I FOLLOW THE LABEL DIRECTION FOR APPLYING THE PRODUCT I USE THE PRODUCT TWICE ON A SEPARATE OCCASION
     Route: 065
     Dates: start: 20240702

REACTIONS (2)
  - Application site erythema [Recovering/Resolving]
  - Application site irritation [Recovering/Resolving]

NARRATIVE: CASE EVENT DATE: 20240702
